FAERS Safety Report 9780147 (Version 1)
Quarter: 2013Q4

REPORT INFORMATION
  Report Type: Spontaneous
  Country: US (occurrence: US)
  Receive Date: 20131223
  Receipt Date: 20131223
  Transmission Date: 20140711
  Serious: Yes (Other)
  Sender: FDA-Public Use
  Company Number: US-ABBVIE-13P-163-1181229-00

PATIENT
  Sex: Female

DRUGS (3)
  1. HUMIRA [Suspect]
     Indication: CROHN^S DISEASE
  2. CIMZIA [Suspect]
     Indication: CROHN^S DISEASE
  3. REMICADE [Suspect]
     Indication: CROHN^S DISEASE

REACTIONS (5)
  - Intestinal resection [Unknown]
  - Drug ineffective [Unknown]
  - Fistula [Unknown]
  - Arthritis [Unknown]
  - Uveitis [Unknown]
